FAERS Safety Report 18313446 (Version 1)
Quarter: 2020Q3

REPORT INFORMATION
  Report Type: Spontaneous
  Country: ES (occurrence: ES)
  Receive Date: 20200925
  Receipt Date: 20200925
  Transmission Date: 20201103
  Serious: Yes (Life-Threatening, Hospitalization)
  Sender: FDA-Public Use
  Company Number: ES-CADILA HEALTHCARE LIMITED-ES-ZYDUS-027546

PATIENT

DRUGS (6)
  1. OMEPRAZOLE. [Suspect]
     Active Substance: OMEPRAZOLE
     Indication: SUICIDE ATTEMPT
     Dosage: 20 CPS
     Route: 048
     Dates: start: 20170507, end: 20170507
  2. TRANXILIUM [Suspect]
     Active Substance: CLORAZEPATE DIPOTASSIUM
     Indication: SUICIDE ATTEMPT
     Dosage: 2 BLISTER, 20 CAPSULE
     Route: 048
     Dates: start: 20170507, end: 20170507
  3. BRINTENAL [Concomitant]
     Dosage: 1?0?0
     Route: 048
     Dates: start: 20160312, end: 20170507
  4. TOPAMAX [Suspect]
     Active Substance: TOPIRAMATE
     Indication: SUICIDE ATTEMPT
     Dosage: 6 BLISTER
     Route: 048
     Dates: start: 20170507, end: 20170507
  5. LYRICA [Suspect]
     Active Substance: PREGABALIN
     Indication: SUICIDE ATTEMPT
     Dosage: 5 BLISTER
     Route: 048
     Dates: start: 20170507, end: 20170507
  6. QUETIAPINE. [Concomitant]
     Active Substance: QUETIAPINE
     Dosage: 0?0?1 ()
     Route: 048
     Dates: end: 20170507

REACTIONS (4)
  - Respiratory failure [Recovered/Resolved]
  - Pancreatitis [Recovered/Resolved]
  - Somnolence [Recovered/Resolved]
  - Metabolic acidosis [Recovered/Resolved]

NARRATIVE: CASE EVENT DATE: 20170507
